FAERS Safety Report 6839488-5 (Version None)
Quarter: 2010Q3

REPORT INFORMATION
  Report Type: 
  Country: None (occurrence: None)
  Receive Date: 20100714
  Receipt Date: 20090911
  Transmission Date: 20110219
  Serious: No
  Sender: FDA-Public Use
  Company Number: A0803792A

PATIENT
  Age: 80 Year
  Sex: Female

DRUGS (7)
  1. FLOVENT [Suspect]
     Indication: BRONCHITIS
     Dosage: 2PUFF TWICE PER DAY
     Route: 055
     Dates: start: 20081202, end: 20090201
  2. ALBUTEROL [Concomitant]
  3. FLECAINIDE ACETATE [Concomitant]
  4. ATENOLOL [Concomitant]
  5. COUMADIN [Concomitant]
  6. AMLODIPINE [Concomitant]
  7. FOSAMAX [Concomitant]

REACTIONS (1)
  - OROPHARYNGEAL PAIN [None]
